FAERS Safety Report 8586950-3 (Version None)
Quarter: 2012Q3

REPORT INFORMATION
  Report Type: 
  Country: None (occurrence: None)
  Receive Date: 20120810
  Receipt Date: 20120711
  Transmission Date: 20120928
  Serious: No
  Sender: FDA-Public Use
  Company Number: US-ASTRAZENECA-2012SE48253

PATIENT
  Sex: Female

DRUGS (3)
  1. OTHER MEDICATIONS [Concomitant]
  2. CRESTOR [Suspect]
     Indication: BLOOD CHOLESTEROL INCREASED
     Route: 048
  3. METFORMIN HYDROCHLORIDE [Concomitant]

REACTIONS (3)
  - DIABETES MELLITUS [None]
  - CREATININE RENAL CLEARANCE DECREASED [None]
  - BLOOD CREATININE INCREASED [None]
